FAERS Safety Report 5756048-8 (Version None)
Quarter: 2008Q2

REPORT INFORMATION
  Report Type: 
  Country: None (occurrence: None)
  Receive Date: 20080602
  Receipt Date: 20080527
  Transmission Date: 20081010
  Serious: Yes (Hospitalization)
  Sender: FDA-Public Use
  Company Number: PHHY2008SK09164

PATIENT

DRUGS (3)
  1. LESCOL XL [Suspect]
     Route: 048
  2. ANOPYRIN [Concomitant]
  3. TRIMEPRANOL [Concomitant]

REACTIONS (3)
  - HYPERTENSION [None]
  - JAUNDICE [None]
  - VOMITING [None]
